FAERS Safety Report 6121410-0 (Version None)
Quarter: 2009Q1

REPORT INFORMATION
  Report Type: 
  Country: None (occurrence: None)
  Receive Date: 20090317
  Receipt Date: 20090303
  Transmission Date: 20090719
  Serious: Yes (Other)
  Sender: FDA-Public Use
  Company Number: US-ASTRAZENECA-2009UW05811

PATIENT
  Age: 74 Year
  Sex: Female
  Weight: 65.3 kg

DRUGS (8)
  1. NEXIUM [Suspect]
     Indication: GASTROOESOPHAGEAL REFLUX DISEASE
     Route: 048
  2. NEXIUM [Suspect]
     Route: 048
     Dates: start: 20050101
  3. NEXIUM [Suspect]
     Route: 048
     Dates: start: 20090201
  4. NADOL [Concomitant]
  5. AMLODIPINE BESYLATE [Concomitant]
  6. SYNTHROID [Concomitant]
  7. CLONAZEPAM [Concomitant]
  8. ASPIRIN [Concomitant]

REACTIONS (2)
  - DRUG INEFFECTIVE [None]
  - HYDROCEPHALUS [None]
